FAERS Safety Report 23904072 (Version 1)
Quarter: 2024Q2

REPORT INFORMATION
  Report Type: Spontaneous
  Country: US (occurrence: US)
  Receive Date: 20240527
  Receipt Date: 20240527
  Transmission Date: 20240716
  Serious: No
  Sender: FDA-Public Use
  Company Number: US-Accord-358879

PATIENT
  Sex: Female

DRUGS (5)
  1. METHOTREXATE [Suspect]
     Active Substance: METHOTREXATE
     Indication: Product used for unknown indication
     Dates: end: 202201
  2. RIFAMPIN [Concomitant]
     Active Substance: RIFAMPIN
  3. HUMIRA [Concomitant]
     Active Substance: ADALIMUMAB
  4. NAPROXEN [Concomitant]
     Active Substance: NAPROXEN
  5. OMEPRAZOLE [Concomitant]
     Active Substance: DONEPEZIL HYDROCHLORIDE\OMEPRAZOLE\OMEPRAZOLE MAGNESIUM

REACTIONS (1)
  - Alopecia [Unknown]
